FAERS Safety Report 24878175 (Version 10)
Quarter: 2025Q4

REPORT INFORMATION
  Report Type: Report from Study
  Country: US (occurrence: None)
  Receive Date: 20250123
  Receipt Date: 20251114
  Transmission Date: 20260118
  Serious: Yes (Other)
  Sender: UCB
  Company Number: US-UCBSA-2024061331

PATIENT
  Age: 24 Year
  Weight: 113.47 kg

DRUGS (22)
  1. FENFLURAMINE [Suspect]
     Active Substance: FENFLURAMINE
     Indication: Severe myoclonic epilepsy of infancy
     Dosage: 5 MILLILITER, 2X/DAY (BID)
  2. FENFLURAMINE [Suspect]
     Active Substance: FENFLURAMINE
     Indication: Lennox-Gastaut syndrome
     Dosage: 0.19 MILLIGRAM/KILOGRAM/DAY (22MG/DAY)
  3. FENFLURAMINE [Suspect]
     Active Substance: FENFLURAMINE
     Dosage: 5 MILLILITER, 2X/DAY (BID)
  4. FENFLURAMINE [Suspect]
     Active Substance: FENFLURAMINE
     Dosage: 5 MILLILITER, 2X/DAY (BID)
  5. Treilepla [Concomitant]
     Indication: Product used for unknown indication
     Dosage: 37 ML IN AM AND 37 ML IN THE PM
  6. XCOPRI [Concomitant]
     Active Substance: CENOBAMATE
     Indication: Product used for unknown indication
     Dosage: 200 MILLIGRAM, ONCE DAILY (QD)
  7. XCOPRI [Concomitant]
     Active Substance: CENOBAMATE
     Dosage: 100 MILLIGRAM, ONCE DAILY (QD)
  8. NAYZILM [Concomitant]
     Indication: Seizure
     Dosage: 5 MG/SPRAY (0.1 ML), SPRAY,NON-AEROSOL, 5 MG INTO 1 NOSTRIL . MAY HAVE AN ADDITIONAL SPRAY (5 MG) INTO THE OPPOSITE NOSTRIL AFTER 10 MINUTES IF THE PATIENT HAS NOT RESPONDED TO THE INITIAL DOSE
  9. KLONOPIN [Concomitant]
     Active Substance: CLONAZEPAM
     Indication: Seizure
     Dosage: TAKE 2 1/2 ORAL TABLET AT NIGHT MAINTENANCE DOSE AND 1 TABLET MORNING AS NEEDED (WHEN PATIENT HAS SEIA:URE FOR 3 DAYS).
  10. KLONOPIN [Concomitant]
     Active Substance: CLONAZEPAM
     Dosage: 0.5 MILLIGRAM 25 TABLET PER NIGHT
  11. OXCARBAZEPINE [Concomitant]
     Active Substance: OXCARBAZEPINE
     Indication: Product used for unknown indication
     Dosage: 3.5 MILLIGRAM, 2X/DAY (BID)
  12. ATOMOXETINE [Concomitant]
     Active Substance: ATOMOXETINE
     Indication: Product used for unknown indication
     Dosage: 40 MILLIGRAM, ONCE DAILY (QD)
  13. ALBUTEROL SULFATE [Concomitant]
     Active Substance: ALBUTEROL SULFATE
     Indication: Product used for unknown indication
     Dosage: TAKE 1 INHALATION GRAM 2 TIMES A DA
  14. REMERON [Concomitant]
     Active Substance: MIRTAZAPINE
     Indication: Product used for unknown indication
     Dosage: 15 MILLIGRAM AT BEDTIME
  15. VITAMINS [Concomitant]
     Active Substance: VITAMINS
     Indication: Product used for unknown indication
     Dosage: 1 ORAL TABLET ONCE A DAY
  16. INVEPTAL [Concomitant]
     Indication: Product used for unknown indication
     Dosage: 37 MILLILITER, 2X/DAY (BID)
  17. MONTELUKAST [Concomitant]
     Active Substance: MONTELUKAST
     Indication: Product used for unknown indication
     Dosage: 1 TABLET ONCE A DAY
  18. CETIRIZINE [Concomitant]
     Active Substance: CETIRIZINE HYDROCHLORIDE
     Indication: Product used for unknown indication
     Dosage: 1 TABLET ONCE A DAY
  19. ASCORBIC ACID [Concomitant]
     Active Substance: ASCORBIC ACID
     Indication: Product used for unknown indication
     Dosage: 1000 MILLIGRAM
  20. CYANOCOBALAMIN [Concomitant]
     Active Substance: CYANOCOBALAMIN
     Indication: Product used for unknown indication
     Dosage: 1 ORAL TABLET ONCE A DAY
  21. RIBOFLAVIN [Concomitant]
     Active Substance: RIBOFLAVIN
     Indication: Product used for unknown indication
     Dosage: 100 MILLIGRAM
  22. VITAMIN B6 [Concomitant]
     Active Substance: PYRIDOXINE HYDROCHLORIDE
     Indication: Product used for unknown indication
     Dosage: 100 MILLIGRAM

REACTIONS (10)
  - Tricuspid valve incompetence [Not Recovered/Not Resolved]
  - Seizure [Not Recovered/Not Resolved]
  - Sickle cell anaemia with crisis [Recovered/Resolved]
  - Toothache [Recovering/Resolving]
  - Weight decreased [Not Recovered/Not Resolved]
  - Laboratory test abnormal [Unknown]
  - Hypertonia [Recovered/Resolved]
  - Swelling face [Recovered/Resolved]
  - Hyperaesthesia teeth [Not Recovered/Not Resolved]
  - Tooth loss [Not Recovered/Not Resolved]
